FAERS Safety Report 9097917 (Version 1)
Quarter: 2013Q1

REPORT INFORMATION
  Report Type: Other
  Country: NO (occurrence: NO)
  Receive Date: 20130212
  Receipt Date: 20130212
  Transmission Date: 20140127
  Serious: Yes (Other)
  Sender: FDA-Public Use
  Company Number: NO-WATSON-2013-01835

PATIENT
  Sex: Female

DRUGS (2)
  1. CHLORPROMAZINE HYDROCHLORIDE [Suspect]
     Indication: PRODUCT USED FOR UNKNOWN INDICATION
     Dosage: UNK
     Route: 065
  2. CARBAMAZEPINE [Suspect]
     Indication: PRODUCT USED FOR UNKNOWN INDICATION
     Dosage: UNK
     Route: 065

REACTIONS (17)
  - Condition aggravated [Recovered/Resolved]
  - Anger [Recovered/Resolved]
  - Catatonia [Recovered/Resolved]
  - Cognitive disorder [Recovered/Resolved]
  - Intentional self-injury [Recovered/Resolved]
  - Delusion [Recovered/Resolved]
  - Mydriasis [Recovered/Resolved]
  - Urinary incontinence [Recovered/Resolved]
  - Dyspraxia [Recovered/Resolved]
  - Dystonia [Recovered/Resolved]
  - Inappropriate affect [Recovered/Resolved]
  - Insomnia [Recovered/Resolved]
  - Mutism [Recovered/Resolved]
  - Convulsion [Recovered/Resolved]
  - Dysphagia [Recovered/Resolved]
  - Tachycardia [Recovered/Resolved]
  - Autonomic neuropathy [Recovered/Resolved]
